FAERS Safety Report 12705228 (Version 1)
Quarter: 2016Q3

REPORT INFORMATION
  Report Type: Spontaneous
  Country: US (occurrence: None)
  Receive Date: 20160831
  Receipt Date: 20160831
  Transmission Date: 20161109
  Serious: Yes (Disabling)
  Sender: FDA-Public Use
  Company Number: None

PATIENT
  Age: 63 Year
  Sex: Female
  Weight: 58.06 kg

DRUGS (5)
  1. MULTIVITAMIN [Concomitant]
     Active Substance: VITAMINS
  2. CALCIUM [Concomitant]
     Active Substance: CALCIUM
  3. FORTEO [Suspect]
     Active Substance: TERIPARATIDE
     Indication: OSTEOPOROSIS
     Dosage: 1 INJECTIOIN(S) AT BEDTIME GIVEN INTO/UNDER THE SKIN
     Route: 058
     Dates: start: 20160701, end: 20160817
  4. ARMOUR THYROID [Concomitant]
     Active Substance: THYROID, PORCINE
  5. FLAX CAPSULES [Concomitant]

REACTIONS (9)
  - Arthralgia [None]
  - Cough [None]
  - Dyspnoea [None]
  - Asthenia [None]
  - Gait disturbance [None]
  - Oropharyngeal pain [None]
  - Bone pain [None]
  - Muscular weakness [None]
  - Dysstasia [None]

NARRATIVE: CASE EVENT DATE: 20160708
